FAERS Safety Report 4519292-3 (Version None)
Quarter: 2004Q4

REPORT INFORMATION
  Report Type: 
  Country: None (occurrence: None)
  Receive Date: 20041201
  Receipt Date: 20041118
  Transmission Date: 20050328
  Serious: Yes (Hospitalization, Other)
  Sender: FDA-Public Use
  Company Number: 2004096034

PATIENT
  Age: 48 Year

DRUGS (5)
  1. VISTARIL [Suspect]
     Indication: MIGRAINE
     Dates: start: 20041028, end: 20041028
  2. KETOROLAC TROMETHAMINE [Suspect]
     Indication: MIGRAINE
     Dates: start: 20041028, end: 20041028
  3. MAGNESIUM CITRATE (MAGNESIUM CITRATE) [Concomitant]
  4. GOLYTELY (MACROGOL, POTASSIUM CHLORIDE, SODIUM BICARBONATE, SODIUM CHL [Concomitant]
  5. VISICOL (SODIUM PHOSPHATE DIBASIC, SODIUM PHOSPHATE MONOBASIC (MONOHYD [Concomitant]

REACTIONS (5)
  - CONVULSION [None]
  - NUCLEAR MAGNETIC RESONANCE IMAGING BRAIN ABNORMAL [None]
  - SPINAL FRACTURE [None]
  - TRAUMATIC FRACTURE [None]
  - UPPER LIMB FRACTURE [None]
